FAERS Safety Report 5711522-5 (Version None)
Quarter: 2008Q2

REPORT INFORMATION
  Report Type: 
  Country: None (occurrence: None)
  Receive Date: 20080421
  Receipt Date: 20080416
  Transmission Date: 20081010
  Serious: Yes (Disabling, Other)
  Sender: FDA-Public Use
  Company Number: US-ALLERGAN-0804591US

PATIENT
  Sex: Female

DRUGS (2)
  1. CELLUVISC [Suspect]
     Indication: DRY EYE
     Dosage: UNK, UNKNOWN
     Route: 047
     Dates: start: 20080101
  2. GENTEAL [Suspect]
     Indication: DRY EYE
     Route: 047

REACTIONS (1)
  - VISION BLURRED [None]
